FAERS Safety Report 4470442-7 (Version None)
Quarter: 2004Q4

REPORT INFORMATION
  Report Type: 
  Country: None (occurrence: None)
  Receive Date: 20041005
  Receipt Date: 20041005
  Transmission Date: 20050328
  Serious: Yes (Other)
  Sender: FDA-Public Use
  Company Number: None

PATIENT
  Age: 48 Year
  Sex: Female
  Weight: 67.1324 kg

DRUGS (1)
  1. SYNTEST  HS  .625 [Suspect]

REACTIONS (3)
  - DIZZINESS [None]
  - MEDICATION ERROR [None]
  - NAUSEA [None]
